FAERS Safety Report 18441628 (Version 5)
Quarter: 2021Q2

REPORT INFORMATION
  Report Type: Report from Study
  Country: DE (occurrence: DE)
  Receive Date: 20201029
  Receipt Date: 20210417
  Transmission Date: 20210717
  Serious: Yes (Hospitalization)
  Sender: FDA-Public Use
  Company Number: DE-TAKEDA-DE202034088

PATIENT
  Age: 5 Year
  Sex: Male

DRUGS (2)
  1. FACTOR VIII INHIBITOR BYPASSING FRACTION; BAXJECT II NF [Suspect]
     Active Substance: ANTI-INHIBITOR COAGULANT COMPLEX
     Indication: FACTOR VIII DEFICIENCY
     Dosage: 1000 INTERNATIONAL UNIT,
     Route: 042
     Dates: start: 20190712
  2. FACTOR VIII INHIBITOR BYPASSING FRACTION; BAXJECT II NF [Suspect]
     Active Substance: ANTI-INHIBITOR COAGULANT COMPLEX
     Dosage: 1000 INTERNATIONAL UNIT, QD
     Route: 042
     Dates: start: 20190225, end: 20210218

REACTIONS (1)
  - Central venous catheter removal [Unknown]

NARRATIVE: CASE EVENT DATE: 20210309
